FAERS Safety Report 9688918 (Version 1)
Quarter: 2013Q4

REPORT INFORMATION
  Report Type: Spontaneous
  Country: GB (occurrence: None)
  Receive Date: 20131112
  Receipt Date: 20131112
  Transmission Date: 20140711
  Serious: Yes (Other)
  Sender: FDA-Public Use
  Company Number: 2013-003590

PATIENT
  Age: 18 Year
  Sex: Male

DRUGS (9)
  1. SARAFEM [Suspect]
     Indication: ANXIETY
     Route: 048
     Dates: start: 20130123, end: 20130201
  2. CLOBAZAM (CLOBAZAM) [Concomitant]
  3. CIRCADIN (MELATONIN) [Concomitant]
  4. VENTOLIN (SALBUTAMOL) [Concomitant]
  5. PIZOTIFEN (PIZOTIFEN) [Concomitant]
  6. LORATIDINE [Concomitant]
  7. SODIUM VALPROATE (VALPROATE SODIUM) [Concomitant]
  8. DESMOPRESSIN (DESMOPRESSIN) [Concomitant]
  9. MIDAZOLAM (MIDAZOLAM) [Concomitant]

REACTIONS (5)
  - Aggression [None]
  - Epistaxis [None]
  - Priapism [None]
  - Agitation [None]
  - Condition aggravated [None]
